FAERS Safety Report 5298246-6 (Version None)
Quarter: 2007Q1

REPORT INFORMATION
  Report Type: 
  Country: None (occurrence: None)
  Receive Date: 20070201
  Receipt Date: 20061012
  Transmission Date: 20070707
  Serious: No
  Sender: FDA-Public Use
  Company Number: 2006PV023029

PATIENT
  Age: 72 Year
  Sex: Female

DRUGS (5)
  1. BYETTA [Suspect]
     Indication: DIABETES MELLITUS NON-INSULIN-DEPENDENT
     Dosage: 5 MCG;BID;SC
     Route: 058
     Dates: start: 20060921
  2. DEMEROL [Suspect]
     Indication: PROCEDURAL PAIN
     Dosage: PRN
     Dates: start: 20061010, end: 20061001
  3. GLIPIZIDE [Concomitant]
  4. METFORMIN [Concomitant]
  5. ADVIL [Concomitant]

REACTIONS (3)
  - BLOOD GLUCOSE INCREASED [None]
  - INSOMNIA [None]
  - ROTATOR CUFF SYNDROME [None]
